FAERS Safety Report 7590097-2 (Version None)
Quarter: 2011Q3

REPORT INFORMATION
  Report Type: 
  Country: None (occurrence: None)
  Receive Date: 20110705
  Receipt Date: 20110623
  Transmission Date: 20111222
  Serious: Yes (Other)
  Sender: FDA-Public Use
  Company Number: B0728119A

PATIENT
  Age: 26 Year
  Sex: Female

DRUGS (5)
  1. FENTANYL [Concomitant]
     Route: 042
  2. ONDANSETRON [Suspect]
     Route: 065
  3. DEXAMETHASONE [Concomitant]
     Route: 042
  4. PROPOFOL [Concomitant]
     Route: 042
  5. SEVOFLURANE [Concomitant]
     Route: 055

REACTIONS (4)
  - NAUSEA [None]
  - CONDITION AGGRAVATED [None]
  - PHOTOPHOBIA [None]
  - MIGRAINE [None]
